FAERS Safety Report 5564128-5 (Version None)
Quarter: 2007Q4

REPORT INFORMATION
  Report Type: 
  Country: None (occurrence: None)
  Receive Date: 20071217
  Receipt Date: 20071205
  Transmission Date: 20080405
  Serious: Yes (Other)
  Sender: FDA-Public Use
  Company Number: US-PFIZER INC-2007102563

PATIENT
  Sex: Male
  Weight: 49.545 kg

DRUGS (1)
  1. DILANTIN [Suspect]
     Indication: GRAND MAL CONVULSION

REACTIONS (2)
  - FEELING DRUNK [None]
  - IMPAIRED DRIVING ABILITY [None]
